FAERS Safety Report 20178633 (Version 1)
Quarter: 2021Q4

REPORT INFORMATION
  Report Type: Spontaneous
  Country: GR (occurrence: GR)
  Receive Date: 20211214
  Receipt Date: 20211214
  Transmission Date: 20220303
  Serious: Yes (Hospitalization, Other)
  Sender: FDA-Public Use
  Company Number: GR-MACLEODS PHARMACEUTICALS US LTD-MAC2021033657

PATIENT

DRUGS (3)
  1. OLANZAPINE [Suspect]
     Active Substance: OLANZAPINE
     Indication: Schizophrenia
     Dosage: 405 MILLIGRAM EVERY 4 WEEK, LONG-ACTING INJECTABLE (INJECTION)
     Route: 065
  2. BIPERIDEN [Concomitant]
     Active Substance: BIPERIDEN
     Indication: Schizophrenia
     Dosage: 6 MILLIGRAM, QD
     Route: 065
  3. RISPERIDONE [Concomitant]
     Active Substance: RISPERIDONE
     Indication: Schizophrenia
     Dosage: 12 MILLIGRAM, QD
     Route: 065

REACTIONS (1)
  - Post-injection delirium sedation syndrome [Recovered/Resolved]
